FAERS Safety Report 8004818-8 (Version None)
Quarter: 2011Q4

REPORT INFORMATION
  Report Type: 
  Country: None (occurrence: None)
  Receive Date: 20111220
  Receipt Date: 20111205
  Transmission Date: 20120403
  Serious: Yes (Hospitalization, Other)
  Sender: FDA-Public Use
  Company Number: FK201102892

PATIENT
  Age: 71 Year
  Sex: Female

DRUGS (1)
  1. DEXAMETHASONE SODIUM PHOSPHATE [Suspect]
     Indication: STEROID THERAPY
     Dosage: 8 MG, BID, DAYS 1-5, EACH CHEMO CYCLE,

REACTIONS (3)
  - BACK PAIN [None]
  - BREAKTHROUGH PAIN [None]
  - SPINAL COMPRESSION FRACTURE [None]
